FAERS Safety Report 23880361 (Version 4)
Quarter: 2024Q2

REPORT INFORMATION
  Report Type: Spontaneous
  Country: BG (occurrence: BG)
  Receive Date: 20240521
  Receipt Date: 20240624
  Transmission Date: 20240715
  Serious: Yes (Hospitalization, Other)
  Sender: FDA-Public Use
  Company Number: BG-BDA-27334

PATIENT
  Age: 92 Year
  Sex: Male

DRUGS (2)
  1. TAMSULOSIN HYDROCHLORIDE [Suspect]
     Active Substance: TAMSULOSIN HYDROCHLORIDE
     Indication: Benign prostatic hyperplasia
     Dosage: 0.4 MG, QD
  2. PERINDOPRIL ARGININE [Suspect]
     Active Substance: PERINDOPRIL ARGININE
     Indication: Hypertension
     Dosage: 10 MG, QD (1X1 IN EVENING, PAST 5 YEARS)

REACTIONS (9)
  - Basal cell carcinoma [Recovering/Resolving]
  - Seborrhoeic keratosis [Recovering/Resolving]
  - Skin lesion [Recovering/Resolving]
  - Scab [Recovering/Resolving]
  - Telangiectasia [Recovering/Resolving]
  - Ulcer [Recovering/Resolving]
  - Multiple drug therapy [Recovering/Resolving]
  - Product contamination [Recovering/Resolving]
  - Pyoderma [Recovering/Resolving]
